FAERS Safety Report 6570382-3 (Version None)
Quarter: 2010Q1

REPORT INFORMATION
  Report Type: 
  Country: None (occurrence: None)
  Receive Date: 20100204
  Receipt Date: 20081215
  Transmission Date: 20100710
  Serious: No
  Sender: FDA-Public Use
  Company Number: A0760466A

PATIENT
  Age: 45 Year
  Sex: Female

DRUGS (3)
  1. ARIXTRA [Suspect]
     Indication: DEEP VEIN THROMBOSIS
     Dosage: 7.5MG PER DAY
     Route: 058
     Dates: start: 20081204
  2. WARFARIN [Concomitant]
  3. PREMARIN [Concomitant]

REACTIONS (3)
  - CONTUSION [None]
  - INJECTION SITE HAEMATOMA [None]
  - VISION BLURRED [None]
